FAERS Safety Report 17801993 (Version 2)
Quarter: 2020Q2

REPORT INFORMATION
  Report Type: Spontaneous
  Country: AR (occurrence: AR)
  Receive Date: 20200519
  Receipt Date: 20200627
  Transmission Date: 20200714
  Serious: Yes (Other)
  Sender: FDA-Public Use
  Company Number: AR-JNJFOC-20200521299

PATIENT
  Age: 16 Year
  Sex: Male

DRUGS (5)
  1. CETIRIZINE HYDROCHLORIDE. [Suspect]
     Active Substance: CETIRIZINE HYDROCHLORIDE
     Indication: URTICARIA CHRONIC
     Dosage: 4 TIMES THE DOSAGE (SUPRATHERAPEUTIC DOSE AND QUADRUPLE DOSE)
     Route: 065
  2. DIPHENHYDRAMINE. [Suspect]
     Active Substance: DIPHENHYDRAMINE
     Indication: URTICARIA CHRONIC
     Dosage: SUPRATHERAPEUTIC DOSE AND QUADRUPLE DOSE
     Route: 065
  3. FEXOFENADINE [Suspect]
     Active Substance: FEXOFENADINE HYDROCHLORIDE
     Indication: URTICARIA CHRONIC
     Dosage: SUPRATHERAPEUTIC DOSE AND QUADRUPLE DOSE
     Route: 065
  4. OMALIZUMAB. [Concomitant]
     Active Substance: OMALIZUMAB
     Indication: URTICARIA CHRONIC
     Dosage: UNKNOWN DOSE
     Route: 065
  5. MONTELUKAST [Suspect]
     Active Substance: MONTELUKAST SODIUM
     Indication: URTICARIA CHRONIC
     Dosage: UNKNOWN DOSE
     Route: 065

REACTIONS (10)
  - Headache [Recovering/Resolving]
  - Fear [Recovering/Resolving]
  - Off label use [Unknown]
  - Overdose [Unknown]
  - Drug ineffective [Unknown]
  - Anaphylactic reaction [Recovering/Resolving]
  - Somnolence [Recovering/Resolving]
  - Anxiety [Recovering/Resolving]
  - Depression [Recovering/Resolving]
  - Loss of personal independence in daily activities [Recovering/Resolving]
